FAERS Safety Report 18757712 (Version 1)
Quarter: 2021Q1

REPORT INFORMATION
  Report Type: Spontaneous
  Country: JP (occurrence: JP)
  Receive Date: 20210119
  Receipt Date: 20210119
  Transmission Date: 20210419
  Serious: Yes (Other)
  Sender: FDA-Public Use
  Company Number: JP-JNJFOC-20200926133

PATIENT
  Sex: Male

DRUGS (2)
  1. XTANDI [Concomitant]
     Active Substance: ENZALUTAMIDE
     Indication: HORMONE-REFRACTORY PROSTATE CANCER
     Dosage: DOSE UNKNOWN
     Route: 065
  2. ERLEADA [Suspect]
     Active Substance: APALUTAMIDE
     Indication: HORMONE-REFRACTORY PROSTATE CANCER
     Dosage: DOSE UNKNOWN
     Route: 048

REACTIONS (1)
  - Metastases to bone [Unknown]
